FAERS Safety Report 19188229 (Version 2)
Quarter: 2021Q2

REPORT INFORMATION
  Report Type: Other
  Country: US (occurrence: US)
  Receive Date: 20210427
  Receipt Date: 20210429
  Transmission Date: 20210717
  Serious: Yes (Other)
  Sender: FDA-Public Use
  Company Number: US-ROCHE-2816448

PATIENT
  Sex: Female

DRUGS (6)
  1. ACTEMRA [Suspect]
     Active Substance: TOCILIZUMAB
     Indication: RHEUMATOID NODULE
  2. ACTEMRA [Suspect]
     Active Substance: TOCILIZUMAB
     Indication: RHEUMATOID ARTHRITIS
  3. ACTEMRA [Suspect]
     Active Substance: TOCILIZUMAB
  4. ACTEMRA [Suspect]
     Active Substance: TOCILIZUMAB
     Indication: RHEUMATOID ARTHRITIS
     Dosage: INJECT 162MG SUBCUTANEOUSLY EVERY 2 WEEK(S)
     Route: 058
  5. ACTEMRA [Suspect]
     Active Substance: TOCILIZUMAB
  6. ACTEMRA [Suspect]
     Active Substance: TOCILIZUMAB

REACTIONS (2)
  - Myocardial infarction [Unknown]
  - Arterial occlusive disease [Unknown]
